FAERS Safety Report 26200943 (Version 1)
Quarter: 2025Q4

REPORT INFORMATION
  Report Type: Spontaneous
  Country: US (occurrence: US)
  Receive Date: 20251226
  Receipt Date: 20251226
  Transmission Date: 20260117
  Serious: No
  Sender: DBL GROUP
  Company Number: US-DBL Pharmaceuticals, Inc.-2191346

PATIENT
  Age: 60 Year

DRUGS (3)
  1. METHOCARBAMOL [Suspect]
     Active Substance: METHOCARBAMOL
     Indication: Spinal pain
  2. GABAPENTIN [Suspect]
     Active Substance: GABAPENTIN
  3. TYLENOL [Suspect]
     Active Substance: ACETAMINOPHEN

REACTIONS (1)
  - Drug ineffective [Unknown]
